FAERS Safety Report 9758775 (Version 2)
Quarter: 2014Q2

REPORT INFORMATION
  Report Type: Spontaneous
  Country: US (occurrence: None)
  Receive Date: 20131216
  Receipt Date: 20140514
  Transmission Date: 20141212
  Serious: Yes (Hospitalization)
  Sender: FDA-Public Use
  Company Number: 074546

PATIENT
  Age: 58 Year
  Sex: Female
  Weight: 92 kg

DRUGS (2)
  1. CIMZIA [Suspect]
     Dosage: ()
     Route: 058
     Dates: start: 201210, end: 20121108
  2. HUMIRA [Suspect]
     Indication: RHEUMATOID ARTHRITIS
     Dosage: (40 MG SUBCUTANEOUS) , (40 MG SUBCUTANEOUS)
     Dates: end: 201208

REACTIONS (1)
  - Transient ischaemic attack [None]
